FAERS Safety Report 21351197 (Version 2)
Quarter: 2022Q4

REPORT INFORMATION
  Report Type: Spontaneous
  Country: US (occurrence: US)
  Receive Date: 20220919
  Receipt Date: 20221017
  Transmission Date: 20230113
  Serious: Yes (Hospitalization)
  Sender: FDA-Public Use
  Company Number: US-BRISTOL-MYERS SQUIBB COMPANY-2022-104838

PATIENT
  Sex: Female

DRUGS (2)
  1. KENALOG [Suspect]
     Active Substance: TRIAMCINOLONE ACETONIDE
     Indication: Product used for unknown indication
     Dosage: DOSE : UNAV;     FREQ : UNAV?STRENGTH AND PRESENTATION OF THE AE : 400 MG / 10 ML
     Route: 058
  2. KENALOG [Suspect]
     Active Substance: TRIAMCINOLONE ACETONIDE
     Route: 058

REACTIONS (3)
  - Rash [Unknown]
  - Pruritus [Unknown]
  - Intentional product use issue [Unknown]
